FAERS Safety Report 13192665 (Version 2)
Quarter: 2017Q1

REPORT INFORMATION
  Report Type: Report from Study
  Country: US (occurrence: US)
  Receive Date: 20170207
  Receipt Date: 20170216
  Transmission Date: 20170428
  Serious: Yes (Death, Hospitalization)
  Sender: FDA-Public Use
  Company Number: US-BAYER-2016-204962

PATIENT
  Age: 64 Year
  Sex: Male

DRUGS (3)
  1. NEXAVAR [Suspect]
     Active Substance: SORAFENIB
     Indication: GASTROINTESTINAL NEOPLASM
     Dosage: 200 MG, BID
     Route: 048
     Dates: end: 20170104
  2. NEXAVAR [Suspect]
     Active Substance: SORAFENIB
     Indication: GASTROINTESTINAL NEOPLASM
     Dosage: 200 MG, BID
     Route: 048
     Dates: start: 20161007, end: 2016
  3. NEXAVAR [Suspect]
     Active Substance: SORAFENIB
     Indication: GASTROINTESTINAL NEOPLASM
     Dosage: 400 MG, BID
     Route: 048
     Dates: start: 20161006, end: 20161006

REACTIONS (8)
  - Pain in extremity [Recovering/Resolving]
  - Blister [Unknown]
  - Off label use [None]
  - Blister [None]
  - Blister [Recovering/Resolving]
  - Acne [Recovering/Resolving]
  - Death [Fatal]
  - Chromaturia [None]

NARRATIVE: CASE EVENT DATE: 20161011
